FAERS Safety Report 6336439-7 (Version None)
Quarter: 2009Q3

REPORT INFORMATION
  Report Type: 
  Country: None (occurrence: None)
  Receive Date: 20090831
  Receipt Date: 20090831
  Transmission Date: 20100115
  Serious: No
  Sender: FDA-Public Use
  Company Number: None

PATIENT
  Sex: Male
  Weight: 6.58 kg

DRUGS (1)
  1. GAMMAGARD [Suspect]
     Indication: KAWASAKI'S DISEASE
     Dosage: 13 GM X1 IV DRIP
     Route: 041
     Dates: start: 20090116, end: 20090117

REACTIONS (4)
  - DRUG RESISTANCE [None]
  - IRRITABILITY [None]
  - PYREXIA [None]
  - SINUS TACHYCARDIA [None]
